FAERS Safety Report 16229000 (Version 1)
Quarter: 2019Q2

REPORT INFORMATION
  Report Type: Spontaneous
  Country: US (occurrence: US)
  Receive Date: 20190319
  Receipt Date: 20190319
  Transmission Date: 20190711
  Serious: Yes (Life-Threatening)
  Sender: FDA-Public Use
  Company Number: None

PATIENT
  Age: 12 Month
  Sex: Male
  Weight: 9.1 kg

DRUGS (1)
  1. PROPOFOL 150 MCG/KG/HR (USED PRECEDEX RATE IN PUMP) [Suspect]
     Active Substance: PROPOFOL
     Indication: SEDATIVE THERAPY
     Dosage: 11 ML 341 ML/HR I.V.
     Route: 042
     Dates: start: 20181031

REACTIONS (3)
  - Wrong product administered [None]
  - Product selection error [None]
  - Apnoea [None]

NARRATIVE: CASE EVENT DATE: 20181031
